FAERS Safety Report 9733127 (Version 1)
Quarter: 2013Q4

REPORT INFORMATION
  Report Type: Spontaneous
  Country: CN (occurrence: CN)
  Receive Date: 20131205
  Receipt Date: 20131205
  Transmission Date: 20140711
  Serious: Yes (Other)
  Sender: FDA-Public Use
  Company Number: CN-WATSON-2013-22129

PATIENT
  Sex: Female

DRUGS (10)
  1. CLOZAPINE (UNKNOWN) [Suspect]
     Indication: SCHIZOPHRENIA, PARANOID TYPE
     Dosage: 500 MG, DAILY
     Route: 065
     Dates: start: 200007, end: 200007
  2. CLOZAPINE (UNKNOWN) [Suspect]
     Dosage: 150-325 MG, DAILY
     Route: 065
     Dates: start: 199610
  3. CLOZAPINE (UNKNOWN) [Suspect]
     Dosage: 75-200 MG, DAILY
     Route: 065
     Dates: start: 200102, end: 200302
  4. CLOZAPINE (UNKNOWN) [Suspect]
     Dosage: 200-450 MG, DAILY
     Route: 065
     Dates: start: 200312
  5. OLANZAPINE (UNKNOWN) [Suspect]
     Indication: SCHIZOPHRENIA, PARANOID TYPE
     Dosage: 10-30 MG, DAILY
     Route: 065
     Dates: start: 200012
  6. THIORIDAZINE (UNKNOWN) [Suspect]
     Indication: SCHIZOPHRENIA, PARANOID TYPE
     Dosage: 200 MG, DAILY
     Route: 065
     Dates: start: 200008, end: 200008
  7. THIORIDAZINE (UNKNOWN) [Suspect]
     Dosage: 450 MG, DAILY
     Route: 065
     Dates: start: 200009, end: 200011
  8. CHLORPROMAZINE HYDROCHLORIDE (WATSON LABORATORIES) [Suspect]
     Indication: SCHIZOPHRENIA, PARANOID TYPE
     Dosage: UNK
     Route: 065
  9. HALOPERIDOL (UNKNOWN) [Suspect]
     Indication: SCHIZOPHRENIA, PARANOID TYPE
     Dosage: UNK
     Route: 065
  10. RISPERIDONE (UNKNOWN) [Suspect]
     Indication: SCHIZOPHRENIA, PARANOID TYPE
     Dosage: UNK
     Route: 065

REACTIONS (6)
  - Epilepsy [Unknown]
  - Diabetes mellitus [Not Recovered/Not Resolved]
  - Hepatic function abnormal [Recovered/Resolved]
  - Lipid metabolism disorder [Recovered/Resolved]
  - Amnesia [Unknown]
  - Somnolence [Unknown]
